FAERS Safety Report 14415188 (Version 1)
Quarter: 2018Q1

REPORT INFORMATION
  Report Type: Spontaneous
  Country: US (occurrence: US)
  Receive Date: 20180118
  Receipt Date: 20180118
  Transmission Date: 20180509
  Serious: Yes (Hospitalization)
  Sender: FDA-Public Use
  Company Number: None

PATIENT
  Age: 65 Year
  Sex: Male
  Weight: 59.8 kg

DRUGS (4)
  1. LEUCOVORIN CALCIUM (FOLINIC ACID) [Suspect]
     Active Substance: LEUCOVORIN CALCIUM
     Indication: PANCREATIC CARCINOMA
     Dosage: IR-210 MG OX-148 MG; 5FU-5123 Q 2 WEEKS, IV
     Route: 042
     Dates: start: 20171002, end: 20171127
  2. OXALIPLATIN. [Suspect]
     Active Substance: OXALIPLATIN
  3. FLUOROURACIL. [Suspect]
     Active Substance: FLUOROURACIL
  4. IRINOTECAN HYDROCHLORIDE. [Suspect]
     Active Substance: IRINOTECAN HYDROCHLORIDE

REACTIONS (1)
  - Device related infection [None]

NARRATIVE: CASE EVENT DATE: 20171210
